FAERS Safety Report 7471141-X (Version None)
Quarter: 2011Q2

REPORT INFORMATION
  Report Type: 
  Country: None (occurrence: None)
  Receive Date: 20110510
  Receipt Date: 20110505
  Transmission Date: 20111010
  Serious: Yes (Hospitalization)
  Sender: FDA-Public Use
  Company Number: IT-PFIZER INC-2011077616

PATIENT
  Age: 61 Year
  Sex: Female

DRUGS (5)
  1. LANSOX [Concomitant]
     Indication: PROPHYLAXIS
     Dosage: 30 MG, 1X/DAY
     Route: 065
  2. PRISMA [Concomitant]
     Indication: VENOUS INSUFFICIENCY
     Dosage: 50 MG, 1X/DAY
     Route: 065
  3. SIVASTIN [Concomitant]
     Indication: HYPERCHOLESTEROLAEMIA
     Dosage: 20 MG, 1X/DAY
     Route: 065
  4. CELEBREX [Suspect]
     Indication: NEURALGIA
     Dosage: 200 MG, DAILY
     Route: 048
     Dates: start: 20110324, end: 20110329
  5. LOBIVON [Concomitant]
     Indication: HYPERTENSION
     Dosage: 1.25 MG, 1X/DAY
     Route: 065

REACTIONS (2)
  - ASTHENIA [None]
  - DIZZINESS [None]
